FAERS Safety Report 12187106 (Version 1)
Quarter: 2016Q1

REPORT INFORMATION
  Report Type: Spontaneous
  Country: US (occurrence: US)
  Receive Date: 20160317
  Receipt Date: 20160317
  Transmission Date: 20160526
  Serious: Yes (Other)
  Sender: FDA-Public Use
  Company Number: US-FRESENIUS KABI-FK201601332

PATIENT
  Age: 60 Year
  Sex: Female

DRUGS (1)
  1. CHORIONIC GONADOTROPIN [Suspect]
     Active Substance: CHORIOGONADOTROPIN ALFA
     Indication: WEIGHT DECREASED
     Route: 058

REACTIONS (5)
  - Hypothyroidism [Recovering/Resolving]
  - Thyroiditis [Recovering/Resolving]
  - Goitre [Recovering/Resolving]
  - Hyperthyroidism [Recovering/Resolving]
  - Off label use [Recovering/Resolving]
